FAERS Safety Report 26117801 (Version 1)
Quarter: 2025Q4

REPORT INFORMATION
  Report Type: Spontaneous
  Country: CN (occurrence: CN)
  Receive Date: 20251203
  Receipt Date: 20251203
  Transmission Date: 20260117
  Serious: Yes (Hospitalization)
  Sender: PFIZER
  Company Number: CN-PFIZER INC-PV202500139676

PATIENT
  Age: 77 Year
  Sex: Female
  Weight: 59.8 kg

DRUGS (4)
  1. METHYLPREDNISOLONE [Suspect]
     Active Substance: METHYLPREDNISOLONE
     Indication: Arthritis
     Dosage: 8 MG, 1X/DAY
     Route: 048
     Dates: start: 20251011, end: 20251113
  2. DICLOFENAC SODIUM [Suspect]
     Active Substance: DICLOFENAC SODIUM
     Indication: Arthritis
     Dosage: 50 MG, 2X/DAY
     Route: 048
     Dates: start: 20251011, end: 20251029
  3. NIMESULIDE [Suspect]
     Active Substance: NIMESULIDE
     Indication: Arthritis
     Dosage: 0.1 G, 2X/DAY
     Route: 048
     Dates: start: 20251029, end: 20251113
  4. FENG SHI GU TONG [Concomitant]
     Indication: Arthritis
     Dosage: 3 DF, 3X/DAY
     Route: 048
     Dates: start: 20251111, end: 20251113

REACTIONS (2)
  - Drug-induced liver injury [Recovering/Resolving]
  - Peptic ulcer [Recovering/Resolving]

NARRATIVE: CASE EVENT DATE: 20251113
